FAERS Safety Report 12802238 (Version 1)
Quarter: 2016Q4

REPORT INFORMATION
  Report Type: Spontaneous
  Country: US (occurrence: US)
  Receive Date: 20161003
  Receipt Date: 20161003
  Transmission Date: 20170207
  Serious: No
  Sender: FDA-Public Use
  Company Number: US-JAZZ-2016-US-012282

PATIENT
  Sex: Female

DRUGS (21)
  1. CALCIUM +D [Concomitant]
     Active Substance: CALCIUM\VITAMIN D
  2. MILK THISTLE [Concomitant]
     Active Substance: MILK THISTLE
  3. RITALIN SR [Concomitant]
     Active Substance: METHYLPHENIDATE HYDROCHLORIDE
  4. DESOGEN [Concomitant]
     Active Substance: DESOGESTREL\ETHINYL ESTRADIOL
  5. XYREM [Suspect]
     Active Substance: SODIUM OXYBATE
     Dosage: 3 G, BID
     Route: 048
     Dates: start: 201301
  6. ASMANEX [Concomitant]
     Active Substance: MOMETASONE FUROATE
  7. PROAIR HFA [Concomitant]
     Active Substance: ALBUTEROL SULFATE
  8. POTASSIUM CITRATE ER [Concomitant]
  9. ZINC ACETATE [Concomitant]
     Active Substance: ZINC ACETATE
  10. BILBERRY EXTRACT [Concomitant]
  11. LUTEIN [Concomitant]
     Active Substance: LUTEIN
  12. MULTIVITAMINS WITH IRON [Concomitant]
     Active Substance: IRON\VITAMINS
  13. NORVASC [Concomitant]
     Active Substance: AMLODIPINE BESYLATE
  14. L-CARNITINE [Concomitant]
     Active Substance: LEVOCARNITINE
  15. LECITHIN [Concomitant]
     Active Substance: LECITHIN
  16. RITALIN [Concomitant]
     Active Substance: METHYLPHENIDATE HYDROCHLORIDE
  17. XYREM [Suspect]
     Active Substance: SODIUM OXYBATE
     Indication: NARCOLEPSY
     Dosage: 2.25 G, BID
     Route: 048
     Dates: start: 201211, end: 201301
  18. ETHINYL OESTRADIOL [Concomitant]
     Active Substance: ETHINYL ESTRADIOL
  19. FLAXSEED [Concomitant]
     Active Substance: FLAX SEED
  20. RITALIN LA [Concomitant]
     Active Substance: METHYLPHENIDATE HYDROCHLORIDE
  21. MAGNESIUM ALUMINIUM SILICAT COLLOID [Concomitant]

REACTIONS (2)
  - Hypertension [Not Recovered/Not Resolved]
  - Asthma [Not Recovered/Not Resolved]
